FAERS Safety Report 6580068-7 (Version None)
Quarter: 2010Q1

REPORT INFORMATION
  Report Type: 
  Country: None (occurrence: None)
  Receive Date: 20100212
  Receipt Date: 20100203
  Transmission Date: 20100710
  Serious: Yes (Hospitalization)
  Sender: FDA-Public Use
  Company Number: US-MERCK-1002USA00639

PATIENT
  Age: 65 Year
  Sex: Male

DRUGS (4)
  1. VYTORIN [Suspect]
     Indication: BLOOD CHOLESTEROL
     Route: 048
     Dates: start: 20091001, end: 20100126
  2. TOPROL-XL [Concomitant]
     Route: 065
  3. ASPIRIN [Concomitant]
     Route: 065
  4. PREVACID [Concomitant]
     Route: 065

REACTIONS (4)
  - CARDIAC DISORDER [None]
  - GASTRIC DISORDER [None]
  - JOINT SWELLING [None]
  - MUSCULOSKELETAL STIFFNESS [None]
